FAERS Safety Report 6197965-7 (Version None)
Quarter: 2009Q2

REPORT INFORMATION
  Report Type: 
  Country: None (occurrence: None)
  Receive Date: 20090521
  Receipt Date: 20090511
  Transmission Date: 20091009
  Serious: Yes (Other)
  Sender: FDA-Public Use
  Company Number: B0574749A

PATIENT
  Age: 60 Year
  Sex: Female

DRUGS (3)
  1. ZIDOVUDINE [Suspect]
     Indication: HIV INFECTION
     Route: 065
  2. LAMIVUDINE [Concomitant]
  3. NEVIRAPINE [Concomitant]

REACTIONS (6)
  - ANOREXIA [None]
  - BLOOD LACTIC ACID INCREASED [None]
  - HYPERLACTACIDAEMIA [None]
  - MITOCHONDRIAL TOXICITY [None]
  - VOMITING [None]
  - WEIGHT DECREASED [None]
